FAERS Safety Report 25486475 (Version 2)
Quarter: 2025Q3

REPORT INFORMATION
  Report Type: Spontaneous
  Country: CH (occurrence: CH)
  Receive Date: 20250627
  Receipt Date: 20250711
  Transmission Date: 20251021
  Serious: No
  Sender: ABBVIE
  Company Number: CH-ABBVIE-6339321

PATIENT
  Age: 32 Year
  Sex: Male

DRUGS (1)
  1. ATOGEPANT [Suspect]
     Active Substance: ATOGEPANT
     Indication: Migraine
     Route: 048
     Dates: start: 20250605

REACTIONS (1)
  - Constipation [Unknown]

NARRATIVE: CASE EVENT DATE: 20250101
